FAERS Safety Report 8476053 (Version 4)
Quarter: 2015Q4

REPORT INFORMATION
  Report Type: Spontaneous
  Country: IT (occurrence: IT)
  Receive Date: 20120326
  Receipt Date: 20151105
  Transmission Date: 20160305
  Serious: Yes (Hospitalization, Other)
  Sender: FDA-Public Use
  Company Number: IT-BRISTOL-MYERS SQUIBB COMPANY-16455727

PATIENT
  Age: 31 Year
  Sex: Female

DRUGS (3)
  1. REYATAZ [Suspect]
     Active Substance: ATAZANAVIR SULFATE
     Indication: ACUTE HIV INFECTION
     Dosage: 300 MG, QD
     Route: 048
     Dates: start: 20111215
  2. NORVIR [Suspect]
     Active Substance: RITONAVIR
     Indication: ACUTE HIV INFECTION
     Dosage: 100 MG, UNK
     Route: 048
     Dates: start: 20111215, end: 20111230
  3. COMBIVIR [Suspect]
     Active Substance: LAMIVUDINE\ZIDOVUDINE
     Indication: ACUTE HIV INFECTION
     Dosage: 450 MG, UNK
     Route: 048
     Dates: start: 20111215, end: 20111230

REACTIONS (3)
  - Maternal exposure during pregnancy [Recovered/Resolved]
  - Uterine dilation and curettage [Unknown]
  - Abortion spontaneous [Recovered/Resolved]

NARRATIVE: CASE EVENT DATE: 2011
